FAERS Safety Report 19591478 (Version 3)
Quarter: 2023Q4

REPORT INFORMATION
  Report Type: Spontaneous
  Country: US (occurrence: US)
  Receive Date: 20210722
  Receipt Date: 20231025
  Transmission Date: 20240109
  Serious: Yes (Other)
  Sender: FDA-Public Use
  Company Number: US-GILEAD-2021-0540684

PATIENT
  Age: 54 Year
  Sex: Male
  Weight: 72.574 kg

DRUGS (48)
  1. TRUVADA [Suspect]
     Active Substance: EMTRICITABINE\TENOFOVIR DISOPROXIL FUMARATE
     Indication: HIV infection
     Dosage: UNK
     Route: 048
     Dates: start: 201008, end: 201601
  2. TRUVADA [Suspect]
     Active Substance: EMTRICITABINE\TENOFOVIR DISOPROXIL FUMARATE
     Dosage: UNK
     Route: 048
     Dates: start: 201811, end: 201912
  3. DESCOVY [Concomitant]
     Active Substance: EMTRICITABINE\TENOFOVIR ALAFENAMIDE FUMARATE
  4. GENVOYA [Concomitant]
     Active Substance: COBICISTAT\ELVITEGRAVIR\EMTRICITABINE\TENOFOVIR ALAFENAMIDE FUMARATE
  5. INTELENCE [Concomitant]
     Active Substance: ETRAVIRINE
  6. NORVIR [Concomitant]
     Active Substance: RITONAVIR
  7. PREZCOBIX [Concomitant]
     Active Substance: COBICISTAT\DARUNAVIR ETHANOLATE
  8. PREZISTA [Concomitant]
     Active Substance: DARUNAVIR ETHANOLATE
  9. REYATAZ [Concomitant]
     Active Substance: ATAZANAVIR SULFATE
  10. ACYCLOVIR [Concomitant]
     Active Substance: ACYCLOVIR
  11. ALLOPURINOL [Concomitant]
     Active Substance: ALLOPURINOL
  12. ALPRAZOLAM [Concomitant]
     Active Substance: ALPRAZOLAM
  13. ATENOLOL [Concomitant]
     Active Substance: ATENOLOL
  14. ATORVASTATIN [Concomitant]
     Active Substance: ATORVASTATIN
  15. AZITHROMYCIN [Concomitant]
     Active Substance: AZITHROMYCIN
  16. CIPROFLOXACIN [Concomitant]
     Active Substance: CIPROFLOXACIN
  17. CITALOPRAM [Concomitant]
     Active Substance: CITALOPRAM HYDROBROMIDE
  18. DICYCLOMINE HYDROCHLORIDE [Concomitant]
     Active Substance: DICYCLOMINE HYDROCHLORIDE
  19. FENTANYL [Concomitant]
     Active Substance: FENTANYL\FENTANYL CITRATE
  20. FETZIMA [Concomitant]
     Active Substance: LEVOMILNACIPRAN HYDROCHLORIDE
  21. FLUOXETINE [Concomitant]
     Active Substance: FLUOXETINE HYDROCHLORIDE
  22. FLUTICASONE [Concomitant]
     Active Substance: FLUTICASONE
  23. HUMALOG [Concomitant]
     Active Substance: INSULIN LISPRO
  24. APAP [Concomitant]
     Active Substance: ACETAMINOPHEN
  25. HYDROMORPHONE [Concomitant]
     Active Substance: HYDROMORPHONE
  26. IBUPROFEN [Concomitant]
     Active Substance: IBUPROFEN
  27. INDOMETHACIN [Concomitant]
     Active Substance: INDOMETHACIN
  28. MAGNESIUM OXIDE [Concomitant]
     Active Substance: MAGNESIUM OXIDE
  29. LISINOPRIL [Concomitant]
     Active Substance: LISINOPRIL
  30. MELATONIN [Concomitant]
     Active Substance: MELATONIN
  31. METHYLPREDNISOLONE [Concomitant]
     Active Substance: METHYLPREDNISOLONE
  32. METOCLOPRAMIDE [Concomitant]
     Active Substance: METOCLOPRAMIDE
  33. METOPROLOL [Concomitant]
     Active Substance: METOPROLOL
  34. METOPROLOL TARTRATE [Concomitant]
     Active Substance: METOPROLOL TARTRATE
  35. MUPIROCIN [Concomitant]
     Active Substance: MUPIROCIN
  36. NAPROXEN [Concomitant]
     Active Substance: NAPROXEN
  37. NOVOLOG [Concomitant]
     Active Substance: INSULIN ASPART
  38. OMEPRAZOLE [Concomitant]
     Active Substance: OMEPRAZOLE
  39. ONDANSETRON [Concomitant]
     Active Substance: ONDANSETRON
  40. PANTOPRAZOLE [Concomitant]
     Active Substance: PANTOPRAZOLE
  41. PREDNISONE [Concomitant]
     Active Substance: PREDNISONE
  42. SERTRALINE [Concomitant]
     Active Substance: SERTRALINE HYDROCHLORIDE
  43. SULFAMETHOXAZOLE [Concomitant]
     Active Substance: SULFAMETHOXAZOLE
  44. TAMSULOSIN [Concomitant]
     Active Substance: TAMSULOSIN
  45. TIZANIDINE [Concomitant]
     Active Substance: TIZANIDINE
  46. TRAZODONE [Concomitant]
     Active Substance: TRAZODONE HYDROCHLORIDE
  47. ULORIC [Concomitant]
     Active Substance: FEBUXOSTAT
  48. VENTOLIN [Concomitant]
     Active Substance: ALBUTEROL SULFATE

REACTIONS (12)
  - Osteoporosis [Unknown]
  - Chronic kidney disease [Not Recovered/Not Resolved]
  - Chronic kidney disease [Not Recovered/Not Resolved]
  - Acute kidney injury [Not Recovered/Not Resolved]
  - Bone density decreased [Unknown]
  - Emotional distress [Not Recovered/Not Resolved]
  - Anxiety [Not Recovered/Not Resolved]
  - Anhedonia [Not Recovered/Not Resolved]
  - Pain [Not Recovered/Not Resolved]
  - Loss of personal independence in daily activities [Not Recovered/Not Resolved]
  - Depression [Not Recovered/Not Resolved]
  - Blood creatinine increased [Not Recovered/Not Resolved]

NARRATIVE: CASE EVENT DATE: 20100901
